FAERS Safety Report 6843560-3 (Version None)
Quarter: 2010Q3

REPORT INFORMATION
  Report Type: 
  Country: None (occurrence: None)
  Receive Date: 20100712
  Receipt Date: 20100629
  Transmission Date: 20110219
  Serious: Yes (Other)
  Sender: FDA-Public Use
  Company Number: B0664394A

PATIENT

DRUGS (1)
  1. ERYTHROMYCIN [Suspect]
     Indication: ERYTHEMA MIGRANS
     Dosage: 125 MG / FOUR TIMES PER FDAY / TRANSPLACENTAL
     Route: 064

REACTIONS (2)
  - JAUNDICE NEONATAL [None]
  - MATERNAL DRUGS AFFECTING FOETUS [None]
